FAERS Safety Report 13139550 (Version 1)
Quarter: 2017Q1

REPORT INFORMATION
  Report Type: Spontaneous
  Country: DE (occurrence: DE)
  Receive Date: 20170123
  Receipt Date: 20170123
  Transmission Date: 20170428
  Serious: Yes (Other)
  Sender: FDA-Public Use
  Company Number: DE-TEVA-730655GER

PATIENT
  Sex: Male

DRUGS (1)
  1. BISOPROLOL-RATIOPHARM 10 MG TABLETTEN [Suspect]
     Active Substance: BISOPROLOL
     Route: 065

REACTIONS (1)
  - Arrhythmia [Unknown]
